FAERS Safety Report 10202574 (Version 1)
Quarter: 2014Q2

REPORT INFORMATION
  Report Type: Spontaneous
  Country: US (occurrence: US)
  Receive Date: 20140528
  Receipt Date: 20140528
  Transmission Date: 20141212
  Serious: Yes (Hospitalization)
  Sender: FDA-Public Use
  Company Number: US-INCYTE CORPORATION-2014IN001415

PATIENT
  Sex: Male

DRUGS (6)
  1. JAKAFI [Suspect]
     Dosage: 15 MG, BID
     Dates: start: 20130912
  2. JAKAFI [Suspect]
     Dosage: 10 MG, BID
  3. COZAAR [Concomitant]
  4. FLOMAX                             /01280302/ [Concomitant]
  5. METFORMIN [Concomitant]
  6. CONTACT LAXATIVES (COLON CLEANSER) [Concomitant]

REACTIONS (1)
  - Abdominal hernia repair [Unknown]
